FAERS Safety Report 16733210 (Version 2)
Quarter: 2019Q3

REPORT INFORMATION
  Report Type: Spontaneous
  Country: JP (occurrence: JP)
  Receive Date: 20190823
  Receipt Date: 20190909
  Transmission Date: 20191005
  Serious: Yes (Life-Threatening, Hospitalization, Other)
  Sender: FDA-Public Use
  Company Number: JP-SAKK-2019SA231410AA

PATIENT
  Age: 55 Year
  Sex: Male

DRUGS (2)
  1. JEVTANA [Suspect]
     Active Substance: CABAZITAXEL
     Indication: HORMONE-REFRACTORY PROSTATE CANCER
     Dosage: DAILY DOSE: 25 MG/M2
     Route: 041
     Dates: start: 20190416, end: 20190507
  2. JEVTANA [Suspect]
     Active Substance: CABAZITAXEL
     Dosage: DAILY DOSE: 20 MG/M2
     Route: 041
     Dates: start: 20190508

REACTIONS (3)
  - Subdural haematoma [Unknown]
  - Plasma cell myeloma [Not Recovered/Not Resolved]
  - Retinal haemorrhage [Not Recovered/Not Resolved]

NARRATIVE: CASE EVENT DATE: 20190625
